FAERS Safety Report 5721581-1 (Version None)
Quarter: 2008Q2

REPORT INFORMATION
  Report Type: 
  Country: None (occurrence: None)
  Receive Date: 20080429
  Receipt Date: 20070302
  Transmission Date: 20081010
  Serious: No
  Sender: FDA-Public Use
  Company Number: US-ASTRAZENECA-2007UW04238

PATIENT
  Age: 76 Year
  Sex: Female
  Weight: 45.4 kg

DRUGS (6)
  1. NEXIUM [Suspect]
     Indication: GASTROOESOPHAGEAL REFLUX DISEASE
     Route: 048
     Dates: start: 20070101
  2. HYDROCODONE BITARTRATE [Concomitant]
  3. LORAZEPAM [Concomitant]
  4. RELAFEN [Concomitant]
  5. PREMARIN [Concomitant]
  6. NEURONTIN [Concomitant]

REACTIONS (2)
  - NERVOUSNESS [None]
  - PERIPHERAL VASCULAR DISORDER [None]
